FAERS Safety Report 6801660-8 (Version None)
Quarter: 2010Q2

REPORT INFORMATION
  Report Type: 
  Country: None (occurrence: None)
  Receive Date: 20100629
  Receipt Date: 20100621
  Transmission Date: 20101027
  Serious: Yes (Death, Other)
  Sender: FDA-Public Use
  Company Number: US-AMGEN-QUU408331

PATIENT
  Sex: Male

DRUGS (13)
  1. NPLATE [Suspect]
     Indication: IDIOPATHIC THROMBOCYTOPENIC PURPURA
     Dates: start: 20090406, end: 20091030
  2. CORTICOSTEROIDS [Concomitant]
     Dates: start: 20090403
  3. PROPRANOLOL [Concomitant]
  4. ATARAX [Concomitant]
  5. EFFEXOR XR [Concomitant]
  6. NORVASC [Concomitant]
  7. PREDNISONE [Concomitant]
  8. DOMPERIDONE [Concomitant]
  9. RIFAMPIN [Concomitant]
  10. NEXIUM [Concomitant]
  11. UNSPECIFIED MEDICATION [Concomitant]
  12. ELAVIL [Concomitant]
  13. ARANESP [Concomitant]
     Route: 058

REACTIONS (6)
  - BILIARY CIRRHOSIS PRIMARY [None]
  - CARDIO-RESPIRATORY ARREST [None]
  - PNEUMONIA [None]
  - THERAPEUTIC RESPONSE DECREASED [None]
  - UPPER GASTROINTESTINAL HAEMORRHAGE [None]
  - VENOUS THROMBOSIS [None]
